FAERS Safety Report 21332801 (Version 3)
Quarter: 2022Q4

REPORT INFORMATION
  Report Type: Spontaneous
  Country: US (occurrence: US)
  Receive Date: 20220914
  Receipt Date: 20221102
  Transmission Date: 20230112
  Serious: No
  Sender: FDA-Public Use
  Company Number: US-PFIZER INC-PV202200061583

PATIENT
  Age: 53 Year
  Sex: Female

DRUGS (4)
  1. XELJANZ XR [Suspect]
     Active Substance: TOFACITINIB CITRATE
     Indication: Rheumatoid arthritis
     Dosage: 11 MG, DAILY
     Route: 048
     Dates: start: 202208
  2. XELJANZ XR [Suspect]
     Active Substance: TOFACITINIB CITRATE
     Dosage: 11 MG, DAILY
     Route: 048
     Dates: start: 20220828, end: 20220909
  3. KEVZARA [Suspect]
     Active Substance: SARILUMAB
     Indication: Rheumatoid arthritis
     Dosage: 150 MG (QOW (EVERY OTHER WEEK), STRENGTH: 150MG/1.14ML
     Route: 058
     Dates: start: 202106
  4. KEVZARA [Suspect]
     Active Substance: SARILUMAB
     Dosage: 200 MG (QOW (EVERY OTHER WEEK), STRENGTH: 200MG/1.14ML
     Route: 058
     Dates: start: 202108

REACTIONS (18)
  - Abdominal discomfort [Unknown]
  - Nausea [Unknown]
  - Fatigue [Unknown]
  - Myalgia [Unknown]
  - Bone pain [Recovering/Resolving]
  - Myalgia [Recovering/Resolving]
  - Pain in extremity [Recovering/Resolving]
  - Condition aggravated [Recovering/Resolving]
  - Arthropod bite [Unknown]
  - Pain [Unknown]
  - Eye pain [Unknown]
  - Headache [Unknown]
  - Vision blurred [Unknown]
  - Abdominal pain upper [Unknown]
  - Blister [Not Recovered/Not Resolved]
  - Eye infection [Not Recovered/Not Resolved]
  - Dysphonia [Not Recovered/Not Resolved]
  - Pruritus [Not Recovered/Not Resolved]

NARRATIVE: CASE EVENT DATE: 20220801
